FAERS Safety Report 5643906-8 (Version None)
Quarter: 2008Q1

REPORT INFORMATION
  Report Type: 
  Country: None (occurrence: None)
  Receive Date: 20080226
  Receipt Date: 20080212
  Transmission Date: 20080703
  Serious: Yes (Hospitalization)
  Sender: FDA-Public Use
  Company Number: 2007BI027312

PATIENT
  Age: 45 Year
  Sex: Female

DRUGS (1)
  1. AVONEX [Suspect]
     Indication: MULTIPLE SCLEROSIS
     Dosage: 22.5 UG; QW; IM
     Route: 030
     Dates: start: 20071201

REACTIONS (5)
  - HEADACHE [None]
  - INTRACRANIAL HYPOTENSION [None]
  - NAUSEA [None]
  - NECK PAIN [None]
  - VOMITING [None]
